FAERS Safety Report 18513626 (Version 2)
Quarter: 2020Q4

REPORT INFORMATION
  Report Type: Spontaneous
  Country: US (occurrence: US)
  Receive Date: 20201117
  Receipt Date: 20201215
  Transmission Date: 20210114
  Serious: No
  Sender: FDA-Public Use
  Company Number: US-BAUSCH-BL-2020-031002

PATIENT
  Age: 72 Year
  Sex: Male
  Weight: 79.45 kg

DRUGS (4)
  1. SODIUM SULFIDE [Suspect]
     Active Substance: SODIUM SULFIDE
     Indication: PRODUCT USED FOR UNKNOWN INDICATION
     Route: 065
  2. PROLENSA [Suspect]
     Active Substance: BROMFENAC SODIUM
     Indication: IRITIS
     Dosage: SINGLE DROP IN AFFECTED EYE 3-4 TIMES A DAY
     Route: 047
     Dates: start: 20201012, end: 20201013
  3. PROLENSA [Suspect]
     Active Substance: BROMFENAC SODIUM
     Indication: PRODUCT USE IN UNAPPROVED INDICATION
  4. LISINOPRIL. [Concomitant]
     Active Substance: LISINOPRIL
     Indication: PRODUCT USED FOR UNKNOWN INDICATION

REACTIONS (4)
  - Ocular hyperaemia [Recovered/Resolved]
  - Discomfort [Recovering/Resolving]
  - Condition aggravated [Recovered/Resolved]
  - Product use in unapproved indication [Unknown]

NARRATIVE: CASE EVENT DATE: 20201012
